FAERS Safety Report 9382099 (Version 3)
Quarter: 2013Q3

REPORT INFORMATION
  Report Type: Spontaneous
  Country: FR (occurrence: FR)
  Receive Date: 20130703
  Receipt Date: 20130816
  Transmission Date: 20140515
  Serious: Yes (Other)
  Sender: FDA-Public Use
  Company Number: FR-AMGEN-USASP2013044804

PATIENT
  Age: 57 Year
  Sex: Female
  Weight: 58 kg

DRUGS (20)
  1. NEULASTA [Suspect]
     Indication: NEUTROPENIA
     Dosage: 6 MG, UNK
     Route: 058
     Dates: start: 20130411
  2. EMEND                              /01627301/ [Concomitant]
     Indication: PROPHYLAXIS
     Dosage: 125 D1, 80 D2, D3
     Route: 048
     Dates: start: 20130408, end: 20130410
  3. FOLINIC ACID [Concomitant]
     Indication: ADENOCARCINOMA OF COLON
     Dosage: UNK
  4. FOLINIC ACID [Concomitant]
     Indication: METASTASES TO LIVER
  5. FOLINIC ACID [Concomitant]
     Indication: METASTASES TO LUNG
  6. 5 FU [Concomitant]
     Indication: COLORECTAL CANCER
     Dosage: 3800 MG, UNK
     Route: 042
     Dates: start: 20130408, end: 20130410
  7. 5 FU [Concomitant]
     Indication: METASTASES TO LIVER
  8. 5 FU [Concomitant]
     Indication: METASTASES TO LUNG
  9. 5 FU [Concomitant]
     Indication: ADENOCARCINOMA OF COLON
  10. OXALIPLATIN [Concomitant]
     Indication: ADENOCARCINOMA OF COLON
     Dosage: UNK
  11. OXALIPLATIN [Concomitant]
     Indication: METASTASES TO LIVER
  12. OXALIPLATIN [Concomitant]
     Indication: METASTASES TO LUNG
  13. IRINOTECAN [Concomitant]
     Indication: COLORECTAL CANCER
     Dosage: 288 MG, UNK
     Route: 042
     Dates: start: 20130408, end: 20130408
  14. IRINOTECAN [Concomitant]
     Indication: METASTASES TO LIVER
  15. IRINOTECAN [Concomitant]
     Indication: METASTASES TO LUNG
  16. IRINOTECAN [Concomitant]
     Indication: ADENOCARCINOMA OF COLON
  17. AVASTIN                            /01555201/ [Concomitant]
     Indication: COLORECTAL CANCER
     Dosage: 289.5 MG, UNK
     Route: 042
     Dates: start: 20130408, end: 20130408
  18. AVASTIN                            /01555201/ [Concomitant]
     Indication: METASTASES TO LIVER
  19. AVASTIN                            /01555201/ [Concomitant]
     Indication: METASTASES TO LUNG
  20. AVASTIN                            /01555201/ [Concomitant]
     Indication: ADENOCARCINOMA OF COLON

REACTIONS (6)
  - Jaundice [Recovered/Resolved]
  - Conversion disorder [Unknown]
  - Presyncope [Recovered/Resolved]
  - Pain [Recovered/Resolved]
  - Malaise [Unknown]
  - Injection site pain [Unknown]
